FAERS Safety Report 8042425-1 (Version None)
Quarter: 2012Q1

REPORT INFORMATION
  Report Type: 
  Country: None (occurrence: None)
  Receive Date: 20120112
  Receipt Date: 20120111
  Transmission Date: 20120608
  Serious: Yes (Other)
  Sender: FDA-Public Use
  Company Number: US-PFIZER INC-2012008715

PATIENT
  Sex: Female

DRUGS (2)
  1. ALBUTEROL [Concomitant]
     Dosage: UNK, AS NEEDED
  2. CHANTIX [Suspect]
     Dosage: UNK

REACTIONS (5)
  - DEPRESSION [None]
  - FEAR [None]
  - RESPIRATION ABNORMAL [None]
  - TACHYPNOEA [None]
  - FEELING DRUNK [None]
